FAERS Safety Report 5088465-6 (Version None)
Quarter: 2006Q3

REPORT INFORMATION
  Report Type: 
  Country: None (occurrence: None)
  Receive Date: 20060823
  Receipt Date: 20060823
  Transmission Date: 20061208
  Serious: Yes (Other)
  Sender: FDA-Public Use
  Company Number: None

PATIENT
  Age: 65 Year
  Sex: Female
  Weight: 47.1741 kg

DRUGS (1)
  1. LESCOL [Suspect]
     Dosage: 80 MG  DAILY   ORAL
     Route: 048

REACTIONS (1)
  - HEPATIC ENZYME INCREASED [None]
